FAERS Safety Report 13739569 (Version 1)
Quarter: 2017Q3

REPORT INFORMATION
  Report Type: Spontaneous
  Country: JP (occurrence: JP)
  Receive Date: 20170710
  Receipt Date: 20170710
  Transmission Date: 20171127
  Serious: Yes (Other)
  Sender: FDA-Public Use
  Company Number: PHHY2012JP028969

PATIENT
  Age: 85 Year
  Sex: Male

DRUGS (8)
  1. YOKUKAN-SAN [Concomitant]
     Active Substance: UNSPECIFIED INGREDIENT
  2. ROZEREM [Concomitant]
     Active Substance: RAMELTEON
  3. PERDIPINE [Suspect]
     Active Substance: NICARDIPINE HYDROCHLORIDE
     Indication: HYPERTENSION
     Dosage: 20 MG, TID
     Route: 048
     Dates: start: 201111, end: 20120229
  4. DIGOXIN. [Concomitant]
     Active Substance: DIGOXIN
  5. HYDERGINE [Suspect]
     Active Substance: ERGOLOID MESYLATES
     Indication: HYPERTENSION
     Dosage: 6 MG, QD
     Route: 048
     Dates: start: 201111, end: 20120328
  6. LASIX [Concomitant]
     Active Substance: FUROSEMIDE
  7. MACACY A [Concomitant]
  8. HYDERGINE [Suspect]
     Active Substance: ERGOLOID MESYLATES
     Dosage: 3 MG
     Route: 048
     Dates: start: 20120329

REACTIONS (4)
  - Loss of consciousness [Recovered/Resolved]
  - Balance disorder [Unknown]
  - Hypotension [Unknown]
  - Dizziness [Unknown]

NARRATIVE: CASE EVENT DATE: 20120329
